FAERS Safety Report 5900823-3 (Version None)
Quarter: 2008Q3

REPORT INFORMATION
  Report Type: 
  Country: None (occurrence: None)
  Receive Date: 20080922
  Receipt Date: 20080905
  Transmission Date: 20090109
  Serious: Yes (Other)
  Sender: FDA-Public Use
  Company Number: AEJPN200800227

PATIENT
  Age: 14 Year
  Sex: Female

DRUGS (1)
  1. IGIV (MANUFACTURER UNKNOWN) (IMMUNE GLOBULIN IV (HUMAN) , [Suspect]
     Indication: GUILLAIN-BARRE SYNDROME
     Dosage: 0.4 G/KG;QD;IV
     Route: 042

REACTIONS (2)
  - REVERSIBLE POSTERIOR LEUKOENCEPHALOPATHY SYNDROME [None]
  - VASCULITIS CEREBRAL [None]
